FAERS Safety Report 8489962-3 (Version None)
Quarter: 2012Q3

REPORT INFORMATION
  Report Type: 
  Country: None (occurrence: None)
  Receive Date: 20120705
  Receipt Date: 20120627
  Transmission Date: 20120928
  Serious: Yes (Life-Threatening, Other)
  Sender: FDA-Public Use
  Company Number: JP-EISAI INC-E7389-02304-SPO-JP

PATIENT
  Sex: Female
  Weight: 39 kg

DRUGS (8)
  1. NICHICODE [Concomitant]
     Indication: COUGH
     Route: 048
     Dates: start: 20120217
  2. TRANSAMINE CAP [Concomitant]
     Indication: UPPER RESPIRATORY TRACT INFLAMMATION
     Route: 048
     Dates: start: 20120217
  3. HALAVEN [Suspect]
     Indication: BREAST CANCER RECURRENT
     Route: 041
     Dates: start: 20120127, end: 20120224
  4. FLOMOX [Concomitant]
     Indication: INFLAMMATION
  5. VITAMIN B12 [Concomitant]
     Route: 048
     Dates: start: 20120127
  6. ASTOMIN [Concomitant]
     Indication: COUGH
     Route: 048
     Dates: start: 20120203, end: 20120217
  7. ASPIRIN [Concomitant]
     Route: 048
     Dates: start: 20120127, end: 20120203
  8. MUCOSTA [Concomitant]
     Indication: UPPER RESPIRATORY TRACT INFLAMMATION
     Route: 048
     Dates: start: 20120217

REACTIONS (1)
  - INTERSTITIAL LUNG DISEASE [None]
